FAERS Safety Report 6357411-7 (Version None)
Quarter: 2009Q3

REPORT INFORMATION
  Report Type: 
  Country: None (occurrence: None)
  Receive Date: 20090916
  Receipt Date: 20090714
  Transmission Date: 20100115
  Serious: No
  Sender: FDA-Public Use
  Company Number: A0796880A

PATIENT
  Age: 34 Year
  Sex: Female

DRUGS (8)
  1. AVANDARYL [Suspect]
     Route: 048
     Dates: start: 20090706, end: 20090713
  2. DIOVAN HCT [Concomitant]
  3. POTASSIUM CHLORIDE [Concomitant]
  4. JANUMET [Concomitant]
  5. FLEXERIL [Concomitant]
  6. BUSPIRONE HCL [Concomitant]
  7. NEXIUM [Concomitant]
  8. VITAMIN D3 [Concomitant]

REACTIONS (2)
  - DIZZINESS [None]
  - EXPIRED DRUG ADMINISTERED [None]
